FAERS Safety Report 8742207 (Version 3)
Quarter: 2013Q1

REPORT INFORMATION
  Report Type: Spontaneous
  Country: US (occurrence: US)
  Receive Date: 20120824
  Receipt Date: 20130115
  Transmission Date: 20140127
  Serious: Yes (Hospitalization)
  Sender: FDA-Public Use
  Company Number: US-BAYER-2012-086134

PATIENT
  Age: 22 Year
  Sex: Female
  Weight: 65.76 kg

DRUGS (7)
  1. GIANVI [Suspect]
     Indication: CONTRACEPTION
     Dosage: UNK
     Route: 048
     Dates: start: 201101, end: 201112
  2. GIANVI [Suspect]
     Indication: ACNE
  3. GIANVI [Suspect]
     Indication: MENSTRUAL CYCLE MANAGEMENT
  4. GIANVI [Suspect]
     Indication: PREMENSTRUAL SYNDROME
  5. YAZ [Suspect]
  6. FLUCONAZOLE [Concomitant]
     Dosage: 150 MG, UNK
  7. AZITHROMYCIN [Concomitant]
     Dosage: 250 MG, UNK

REACTIONS (4)
  - Deep vein thrombosis [None]
  - Pain in extremity [None]
  - Anxiety [None]
  - Fatigue [None]
